FAERS Safety Report 7525129-0 (Version None)
Quarter: 2011Q2

REPORT INFORMATION
  Report Type: 
  Country: None (occurrence: None)
  Receive Date: 20110606
  Receipt Date: 20110531
  Transmission Date: 20111010
  Serious: Yes (Death, Hospitalization, Other)
  Sender: FDA-Public Use
  Company Number: US-CELGENEUS-163-21880-11042966

PATIENT
  Sex: Female

DRUGS (38)
  1. REVLIMID [Suspect]
     Dosage: 25 MILLIGRAM
     Route: 048
     Dates: start: 20100617
  2. COMPAZINE [Concomitant]
     Dosage: 10 MILLIGRAM
     Route: 065
  3. LYRICA [Concomitant]
     Dosage: 100 MILLIGRAM
     Route: 048
  4. MORPHINE [Concomitant]
     Dosage: 15 MILLIGRAM
     Route: 065
  5. ONDANSETRON [Concomitant]
     Dosage: 8 MILLIGRAM
     Route: 065
  6. PRILOSEC [Concomitant]
     Dosage: 20 MILLIGRAM
     Route: 065
  7. SENNA-MINT WAF [Concomitant]
     Dosage: 1-4
     Route: 048
  8. SODIUM PHOSPHATES [Concomitant]
     Indication: CONSTIPATION
     Dosage: 50 MICROGRAM
     Route: 065
  9. MAGNESIUM CITRATE [Concomitant]
     Indication: CONSTIPATION
     Dosage: 150-300 ML
     Route: 048
  10. CYTOXAN [Concomitant]
     Indication: MULTIPLE MYELOMA
     Route: 065
  11. DEXAMETHASONE [Concomitant]
     Indication: MULTIPLE MYELOMA
     Dosage: ORAL OR IV
     Route: 065
     Dates: start: 20110406
  12. MAGIC MOUTH WASH [Concomitant]
     Dosage: SWISH AND SWALLOW
     Route: 048
  13. BACLOFEN [Concomitant]
     Indication: HICCUPS
     Dosage: 10 MILLIGRAM
     Route: 048
  14. POTASSIUM CHLORIDE [Concomitant]
     Dosage: 25 MICROGRAM
     Route: 065
  15. VELCADE [Concomitant]
     Indication: MULTIPLE MYELOMA
     Dosage: 1.3 MILLIGRAM/SQ. METER
     Route: 051
     Dates: start: 20110406
  16. ACYCLOVIR [Concomitant]
     Dosage: 400 MILLIGRAM
     Route: 048
  17. MORPHINE [Concomitant]
     Route: 051
  18. TYLENOL-500 [Concomitant]
     Dosage: 1-2
     Route: 048
  19. POTASSIUM CHLORIDE [Concomitant]
     Dosage: 50 MICROGRAM
     Route: 065
  20. REVLIMID [Suspect]
     Dosage: 25 MILLIGRAM
     Route: 048
     Dates: start: 20091230, end: 20100429
  21. MS CONTIN [Concomitant]
     Dosage: 60 MILLIGRAM
     Route: 065
  22. MORPHINE [Concomitant]
     Route: 051
  23. LACTULOSE [Concomitant]
     Indication: CONSTIPATION
     Dosage: 20 GRAM
     Route: 048
  24. REVLIMID [Suspect]
     Indication: MULTIPLE MYELOMA
     Dosage: 25 MILLIGRAM
     Route: 048
     Dates: start: 20081201
  25. REVLIMID [Suspect]
     Dosage: 15 MILLIGRAM
     Route: 048
     Dates: start: 20110406
  26. LIDOCAINE [Concomitant]
     Dosage: 1
     Route: 061
  27. CALCIUM PLUS WITH VITAMIN D [Concomitant]
     Dosage: 2 TABLET
     Route: 065
  28. ASPIRIN [Concomitant]
     Dosage: 81 MILLIGRAM
     Route: 065
  29. ALLEGRA [Concomitant]
     Dosage: 180/240MG
     Route: 048
  30. AMBIEN [Concomitant]
     Dosage: 1-2
     Route: 048
  31. DULCOLAX [Concomitant]
     Indication: CONSTIPATION
     Dosage: 10 MILLIGRAM
     Route: 054
  32. SCOPOLAMINE [Concomitant]
     Indication: CONSTIPATION
     Dosage: 1.5 MG PER 72 HOURS
     Route: 062
  33. CELEXA [Concomitant]
     Dosage: 10 MILLIGRAM
     Route: 065
  34. LEVOTHYROXINE SODIUM [Concomitant]
     Dosage: 1
     Route: 048
  35. MIRALAX [Concomitant]
     Dosage: 17 GRAM
     Route: 065
  36. CALCITRIOL [Concomitant]
     Dosage: .25 MICROGRAM
     Route: 065
  37. CIPROFLOXACIN [Concomitant]
     Dosage: 500 MILLIGRAM
     Route: 065
  38. COREG [Concomitant]
     Dosage: 3.125 MILLIGRAM
     Route: 065

REACTIONS (8)
  - TREMOR [None]
  - MULTIPLE MYELOMA [None]
  - HERPES ZOSTER [None]
  - FATIGUE [None]
  - PYREXIA [None]
  - RENAL FAILURE ACUTE [None]
  - PANCYTOPENIA [None]
  - HYPERCALCAEMIA [None]
